FAERS Safety Report 5161865-1 (Version None)
Quarter: 2006Q4

REPORT INFORMATION
  Report Type: 
  Country: None (occurrence: None)
  Receive Date: 20061130
  Receipt Date: 20061011
  Transmission Date: 20070319
  Serious: No
  Sender: FDA-Public Use
  Company Number: US-GLAXOSMITHKLINE-A0623227A

PATIENT
  Age: 82 Year
  Sex: Female

DRUGS (6)
  1. WELLBUTRIN XL [Suspect]
     Indication: DEPRESSION
     Dosage: 150MG PER DAY
     Route: 048
     Dates: end: 20061006
  2. KLONOPIN [Concomitant]
  3. FOLIC ACID [Concomitant]
  4. PREMARIN [Concomitant]
  5. B12 [Concomitant]
  6. B6 [Concomitant]

REACTIONS (4)
  - DIZZINESS [None]
  - FATIGUE [None]
  - INSOMNIA [None]
  - NAUSEA [None]
